FAERS Safety Report 6749123-2 (Version None)
Quarter: 2010Q2

REPORT INFORMATION
  Report Type: 
  Country: None (occurrence: None)
  Receive Date: 20100601
  Receipt Date: 20100527
  Transmission Date: 20101027
  Serious: Yes (Other)
  Sender: FDA-Public Use
  Company Number: FR-BRISTOL-MYERS SQUIBB COMPANY-15124910

PATIENT
  Age: 76 Year
  Sex: Male

DRUGS (9)
  1. HYDREA [Suspect]
     Indication: CHRONIC MYELOID LEUKAEMIA
     Dosage: RECEIVED FOR ATLEAST 6 YEARS.
  2. PURINETHOL [Concomitant]
     Indication: LEUKAEMIA
  3. PREVISCAN [Concomitant]
  4. METFORMIN HCL [Concomitant]
  5. ALPRAZOLAM [Concomitant]
  6. BECLOMETASONE DIPROPIONATE+FORMOTEROL FUMARATE [Concomitant]
  7. MIANSERIN [Concomitant]
  8. TETRALYSAL [Concomitant]
  9. METRONIDAZOLE [Concomitant]

REACTIONS (2)
  - COUGH [None]
  - DEPRESSION [None]
